FAERS Safety Report 19078784 (Version 1)
Quarter: 2021Q1

REPORT INFORMATION
  Report Type: Spontaneous
  Country: IN (occurrence: IN)
  Receive Date: 20210331
  Receipt Date: 20210331
  Transmission Date: 20210420
  Serious: Yes (Death)
  Sender: FDA-Public Use
  Company Number: IN-PFIZER INC-2020231542

PATIENT
  Age: 46 Year
  Sex: Female

DRUGS (5)
  1. LIVOGEN [FERROUS FUMARATE;FOLIC ACID] [Concomitant]
     Dosage: UNK, 1X/DAY
  2. PALBACE [Suspect]
     Active Substance: PALBOCICLIB
     Indication: BREAST CANCER METASTATIC
     Dosage: 125 MG, 1X/DAY
     Route: 048
     Dates: start: 20190717
  3. LETROZOLE. [Concomitant]
     Active Substance: LETROZOLE
     Dosage: UNK, 1X/DAY (2.5, 0?0?1)
  4. PALBACE [Suspect]
     Active Substance: PALBOCICLIB
     Dosage: 125 MG, 1X/DAY (0?1?0)
     Route: 048
     Dates: start: 20201009
  5. SHELCAL [Concomitant]
     Active Substance: CALCIUM CARBONATE\CHOLECALCIFEROL
     Dosage: UNK (500, 0?1?0 )

REACTIONS (5)
  - Blood test abnormal [Unknown]
  - Lymphocyte percentage increased [Unknown]
  - Death [Fatal]
  - Neutrophil percentage decreased [Unknown]
  - Haemoglobin decreased [Unknown]

NARRATIVE: CASE EVENT DATE: 20200607
